FAERS Safety Report 5370697-0 (Version None)
Quarter: 2007Q2

REPORT INFORMATION
  Report Type: 
  Country: None (occurrence: None)
  Receive Date: 20070618
  Receipt Date: 20060830
  Transmission Date: 20071010
  Serious: Yes (Other)
  Sender: FDA-Public Use
  Company Number: PHEH2006US11200

PATIENT

DRUGS (1)
  1. GLEEVEC [Suspect]
     Dosage: 800 MG, QD, ORAL
     Route: 048
     Dates: start: 20040801

REACTIONS (1)
  - CONJUNCTIVAL HAEMORRHAGE [None]
